FAERS Safety Report 7398750-0 (Version None)
Quarter: 2011Q2

REPORT INFORMATION
  Report Type: 
  Country: None (occurrence: None)
  Receive Date: 20110401
  Receipt Date: 20110401
  Transmission Date: 20111010
  Serious: No
  Sender: FDA-Public Use
  Company Number: None

PATIENT
  Age: 71 Year
  Sex: Male
  Weight: 88.4514 kg

DRUGS (2)
  1. CEPHALEXIN [Suspect]
     Indication: LYMPHADENITIS
     Dosage: 500 MG 4 DAILY
     Dates: start: 20110329, end: 20110330
  2. CEPHALEXIN [Suspect]
     Indication: PAROTITIS
     Dosage: 500 MG 4 DAILY
     Dates: start: 20110329, end: 20110330

REACTIONS (1)
  - RASH GENERALISED [None]
